FAERS Safety Report 26150556 (Version 1)
Quarter: 2025Q4

REPORT INFORMATION
  Report Type: Spontaneous
  Country: US (occurrence: US)
  Receive Date: 20251212
  Receipt Date: 20251212
  Transmission Date: 20260117
  Serious: Yes (Other)
  Sender: MYLAN
  Company Number: US-MYLANLABS-2025M1105544

PATIENT
  Sex: Male

DRUGS (28)
  1. ARGATROBAN [Suspect]
     Active Substance: ARGATROBAN
     Indication: Thrombosis prophylaxis
     Dosage: 290 MICROGRAM/KILOGRAM, DIVIDED INTO TWO BOLUSES OF 12.5MG EACH, INFUSION
  2. ARGATROBAN [Suspect]
     Active Substance: ARGATROBAN
     Dosage: 290 MICROGRAM/KILOGRAM, DIVIDED INTO TWO BOLUSES OF 12.5MG EACH, INFUSION
  3. ARGATROBAN [Suspect]
     Active Substance: ARGATROBAN
     Dosage: 290 MICROGRAM/KILOGRAM, DIVIDED INTO TWO BOLUSES OF 12.5MG EACH, INFUSION
     Route: 065
  4. ARGATROBAN [Suspect]
     Active Substance: ARGATROBAN
     Dosage: 290 MICROGRAM/KILOGRAM, DIVIDED INTO TWO BOLUSES OF 12.5MG EACH, INFUSION
     Route: 065
  5. ARGATROBAN [Suspect]
     Active Substance: ARGATROBAN
     Dosage: 25 MICROGRAM/KILOGRAM, QMINUTE,  INFUSION
  6. ARGATROBAN [Suspect]
     Active Substance: ARGATROBAN
     Dosage: 25 MICROGRAM/KILOGRAM, QMINUTE,  INFUSION
  7. ARGATROBAN [Suspect]
     Active Substance: ARGATROBAN
     Dosage: 25 MICROGRAM/KILOGRAM, QMINUTE,  INFUSION
     Route: 042
  8. ARGATROBAN [Suspect]
     Active Substance: ARGATROBAN
     Dosage: 25 MICROGRAM/KILOGRAM, QMINUTE,  INFUSION
     Route: 042
  9. APIXABAN [Suspect]
     Active Substance: APIXABAN
     Indication: Thrombosis prophylaxis
     Dosage: 2.5 MILLIGRAM, BID
  10. APIXABAN [Suspect]
     Active Substance: APIXABAN
     Indication: Atrial fibrillation
     Dosage: 2.5 MILLIGRAM, BID
     Route: 065
  11. APIXABAN [Suspect]
     Active Substance: APIXABAN
     Dosage: 2.5 MILLIGRAM, BID
     Route: 065
  12. APIXABAN [Suspect]
     Active Substance: APIXABAN
     Dosage: 2.5 MILLIGRAM, BID
  13. HEPARIN [Concomitant]
     Active Substance: HEPARIN SODIUM
     Indication: Anticoagulant therapy
     Dosage: UNK
  14. HEPARIN [Concomitant]
     Active Substance: HEPARIN SODIUM
     Dosage: UNK
     Route: 065
  15. HEPARIN [Concomitant]
     Active Substance: HEPARIN SODIUM
     Dosage: UNK
     Route: 065
  16. HEPARIN [Concomitant]
     Active Substance: HEPARIN SODIUM
     Dosage: UNK
  17. FENTANYL [Concomitant]
     Active Substance: FENTANYL
     Indication: General anaesthesia
     Dosage: 100 MICROGRAM
  18. FENTANYL [Concomitant]
     Active Substance: FENTANYL
     Dosage: 100 MICROGRAM
     Route: 042
  19. FENTANYL [Concomitant]
     Active Substance: FENTANYL
     Dosage: 100 MICROGRAM
     Route: 042
  20. FENTANYL [Concomitant]
     Active Substance: FENTANYL
     Dosage: 100 MICROGRAM
  21. PROPOFOL [Concomitant]
     Active Substance: PROPOFOL
     Indication: General anaesthesia
     Dosage: 150 MICROGRAM
  22. PROPOFOL [Concomitant]
     Active Substance: PROPOFOL
     Dosage: 150 MICROGRAM
     Route: 042
  23. PROPOFOL [Concomitant]
     Active Substance: PROPOFOL
     Dosage: 150 MICROGRAM
     Route: 042
  24. PROPOFOL [Concomitant]
     Active Substance: PROPOFOL
     Dosage: 150 MICROGRAM
  25. ROCURONIUM [Concomitant]
     Active Substance: ROCURONIUM BROMIDE
     Indication: General anaesthesia
     Dosage: 50 MICROGRAM
  26. ROCURONIUM [Concomitant]
     Active Substance: ROCURONIUM BROMIDE
     Dosage: 50 MICROGRAM
     Route: 042
  27. ROCURONIUM [Concomitant]
     Active Substance: ROCURONIUM BROMIDE
     Dosage: 50 MICROGRAM
     Route: 042
  28. ROCURONIUM [Concomitant]
     Active Substance: ROCURONIUM BROMIDE
     Dosage: 50 MICROGRAM

REACTIONS (8)
  - Retroperitoneal haemorrhage [Unknown]
  - Gastrointestinal haemorrhage [Unknown]
  - Off label use [Unknown]
  - Acute myocardial infarction [Unknown]
  - Myocardial ischaemia [Unknown]
  - Gastritis [Unknown]
  - Duodenitis [Unknown]
  - Gastrointestinal ulcer [Unknown]
